FAERS Safety Report 22944749 (Version 2)
Quarter: 2023Q4

REPORT INFORMATION
  Report Type: Report from Study
  Country: US (occurrence: US)
  Receive Date: 20230914
  Receipt Date: 20231206
  Transmission Date: 20240110
  Serious: Yes (Hospitalization)
  Sender: FDA-Public Use
  Company Number: US-ABBVIE-5406038

PATIENT
  Age: 85 Year
  Sex: Female
  Weight: 54.431 kg

DRUGS (2)
  1. DUOPA [Suspect]
     Active Substance: CARBIDOPA\LEVODOPA
     Indication: Parkinson^s disease
     Dosage: STRENGTH- 4.63-20MG/?100 ML?DOSE/FREQUENCY: 1 CASSETTE VIA PEG-J FOR UP TO 16 HOURS EACH?DAY. MOR...
     Route: 050
     Dates: start: 20230828
  2. DUOPA [Suspect]
     Active Substance: CARBIDOPA\LEVODOPA

REACTIONS (2)
  - Loss of consciousness [Recovered/Resolved]
  - Hypotension [Unknown]

NARRATIVE: CASE EVENT DATE: 20230828
